FAERS Safety Report 13796202 (Version 1)
Quarter: 2017Q3

REPORT INFORMATION
  Report Type: Spontaneous
  Country: US (occurrence: US)
  Receive Date: 20170726
  Receipt Date: 20170726
  Transmission Date: 20171127
  Serious: Yes (Other)
  Sender: FDA-Public Use
  Company Number: US-PFIZER INC-2017322384

PATIENT
  Age: 70 Year
  Sex: Female

DRUGS (3)
  1. IBRANCE [Suspect]
     Active Substance: PALBOCICLIB
     Indication: NEOPLASM MALIGNANT
     Dosage: 125MG ONE CAPSULE A DAY FOR 3 WEEKS AND OFF ONE WEEK
     Route: 048
     Dates: start: 201510
  2. FASLODEX [Suspect]
     Active Substance: FULVESTRANT
     Indication: NEOPLASM MALIGNANT
     Dosage: SHOT IN HER BEHIND EVERY 6 TO 8 WEEKS
     Dates: start: 201510
  3. XGEVA [Concomitant]
     Active Substance: DENOSUMAB
     Indication: SPINAL DISORDER
     Dosage: SHOT IN HER BEHIND EVERY 3 MONTHS
     Dates: start: 201510

REACTIONS (5)
  - Ocular hypertension [Recovering/Resolving]
  - White blood cell count decreased [Unknown]
  - Papilloedema [Unknown]
  - Red blood cell count decreased [Unknown]
  - Cataract [Unknown]
